FAERS Safety Report 21601754 (Version 3)
Quarter: 2023Q2

REPORT INFORMATION
  Report Type: Report from Study
  Country: US (occurrence: US)
  Receive Date: 20221116
  Receipt Date: 20230630
  Transmission Date: 20230722
  Serious: Yes (Other)
  Sender: FDA-Public Use
  Company Number: US-GW PHARMA-2022-US-033573

PATIENT
  Age: 12 Year
  Sex: Female
  Weight: 51.882 kg

DRUGS (8)
  1. EPIDIOLEX [Suspect]
     Active Substance: CANNABIDIOL
     Indication: Epilepsy
     Dosage: 5 MILLILITER, BID
     Route: 048
  2. EPIDIOLEX [Suspect]
     Active Substance: CANNABIDIOL
     Indication: Seizure
     Dosage: 650 MG BID
     Route: 048
     Dates: start: 20200818
  3. EPIDIOLEX [Suspect]
     Active Substance: CANNABIDIOL
     Dosage: 3.9 ML QAM AND 5 ML QPM
  4. EPIDIOLEX [Suspect]
     Active Substance: CANNABIDIOL
     Dosage: 3.9 ML AND 3.9 ML
  5. EPIDIOLEX [Suspect]
     Active Substance: CANNABIDIOL
     Dosage: 2.6 ML QAM AND 3.7 ML QPM
  6. TOPAMAX [Concomitant]
     Active Substance: TOPIRAMATE
     Indication: Seizure
     Dosage: 300 MILLIGRAM, BID
     Route: 048
     Dates: start: 20180718
  7. TOPAMAX [Concomitant]
     Active Substance: TOPIRAMATE
     Dosage: 150 MILLIGRAM, BID
     Route: 048
     Dates: start: 20190322
  8. CLONIDINE [Concomitant]
     Active Substance: CLONIDINE
     Indication: Seizure
     Dosage: 0.1 MILLIGRAM, QD
     Route: 048
     Dates: start: 20180727

REACTIONS (2)
  - Mental impairment [Unknown]
  - Diarrhoea [Recovered/Resolved]

NARRATIVE: CASE EVENT DATE: 20220429
